FAERS Safety Report 11795415 (Version 1)
Quarter: 2015Q4

REPORT INFORMATION
  Report Type: Spontaneous
  Country: US (occurrence: US)
  Receive Date: 20151202
  Receipt Date: 20151202
  Transmission Date: 20160305
  Serious: No
  Sender: FDA-Public Use
  Company Number: US-SA-2015SA132604

PATIENT
  Age: 21 Year
  Sex: Male
  Weight: 56.67 kg

DRUGS (3)
  1. CERDELGA [Suspect]
     Active Substance: ELIGLUSTAT
     Indication: LIPIDOSIS
     Route: 065
     Dates: start: 2015
  2. PROTONIX [Interacting]
     Active Substance: PANTOPRAZOLE SODIUM
     Route: 065
     Dates: start: 2015
  3. CLARAVIS [Concomitant]
     Active Substance: ISOTRETINOIN

REACTIONS (4)
  - Peripheral swelling [Unknown]
  - Drug interaction [Unknown]
  - Paraesthesia [Unknown]
  - Dyspepsia [Unknown]

NARRATIVE: CASE EVENT DATE: 2015
